FAERS Safety Report 15135969 (Version 9)
Quarter: 2025Q2

REPORT INFORMATION
  Report Type: Spontaneous
  Country: DE (occurrence: DE)
  Receive Date: 20180712
  Receipt Date: 20250404
  Transmission Date: 20250717
  Serious: Yes (Hospitalization, Other)
  Sender: TEVA
  Company Number: DE-GLAXOSMITHKLINE-DE2018GSK087681

PATIENT
  Age: 75 Year
  Sex: Male
  Weight: 81 kg

DRUGS (27)
  1. CHOLECALCIFEROL [Suspect]
     Active Substance: CHOLECALCIFEROL
     Indication: Osteoporosis
     Route: 048
     Dates: start: 201204
  2. TOCILIZUMAB [Suspect]
     Active Substance: TOCILIZUMAB
     Indication: Vasculitis
     Route: 058
     Dates: start: 20180414
  3. TOCILIZUMAB [Suspect]
     Active Substance: TOCILIZUMAB
     Indication: Vasculitis
     Route: 058
     Dates: start: 201704, end: 20171025
  4. TOCILIZUMAB [Suspect]
     Active Substance: TOCILIZUMAB
     Indication: Vasculitis
     Route: 058
     Dates: start: 20180414
  5. TOCILIZUMAB [Suspect]
     Active Substance: TOCILIZUMAB
     Indication: Vasculitis
     Route: 065
  6. TOCILIZUMAB [Suspect]
     Active Substance: TOCILIZUMAB
     Indication: Vasculitis
     Route: 058
     Dates: start: 20190227, end: 20190327
  7. TOCILIZUMAB [Suspect]
     Active Substance: TOCILIZUMAB
     Indication: Vasculitis
     Route: 058
  8. TOCILIZUMAB [Suspect]
     Active Substance: TOCILIZUMAB
     Indication: Vasculitis
     Route: 058
     Dates: start: 20180131
  9. TOCILIZUMAB [Suspect]
     Active Substance: TOCILIZUMAB
     Indication: Vasculitis
     Route: 058
     Dates: end: 201506
  10. TOCILIZUMAB [Suspect]
     Active Substance: TOCILIZUMAB
     Indication: Vasculitis
     Route: 058
     Dates: start: 20150706, end: 20171025
  11. TOCILIZUMAB [Suspect]
     Active Substance: TOCILIZUMAB
     Indication: Vasculitis
     Route: 058
     Dates: start: 20140601, end: 201506
  12. TOCILIZUMAB [Suspect]
     Active Substance: TOCILIZUMAB
     Indication: Vasculitis
     Route: 058
     Dates: start: 201811
  13. TOCILIZUMAB [Suspect]
     Active Substance: TOCILIZUMAB
     Indication: Vasculitis
     Route: 058
     Dates: start: 20190328, end: 20190404
  14. TOCILIZUMAB [Suspect]
     Active Substance: TOCILIZUMAB
     Indication: Vasculitis
     Route: 058
     Dates: start: 201904
  15. CORTISONE ACETATE [Concomitant]
     Active Substance: CORTISONE ACETATE
     Indication: Product used for unknown indication
     Route: 065
  16. PROLIA [Suspect]
     Active Substance: DENOSUMAB
     Indication: Osteoporosis
     Dosage: UNK
     Route: 058
     Dates: start: 201405
  17. NADROPARIN CALCIUM [Suspect]
     Active Substance: NADROPARIN CALCIUM
     Indication: Peripheral vein thrombosis
     Route: 065
     Dates: start: 201507
  18. ENOXAPARIN SODIUM [Suspect]
     Active Substance: ENOXAPARIN SODIUM
     Indication: Peripheral vein thrombosis
     Route: 065
     Dates: start: 201507
  19. AMLODIPINE [Concomitant]
     Active Substance: AMLODIPINE BESYLATE
     Indication: Product used for unknown indication
     Route: 065
  20. AMLODIPINE [Concomitant]
     Active Substance: AMLODIPINE BESYLATE
     Indication: Product used for unknown indication
     Route: 065
  21. NADROPARIN [Suspect]
     Active Substance: NADROPARIN
     Indication: Peripheral vein thrombosis
     Route: 065
  22. LISINOPRIL [Concomitant]
     Active Substance: LISINOPRIL
     Indication: Product used for unknown indication
     Route: 065
  23. ESCITALOPRAM [Concomitant]
     Active Substance: ESCITALOPRAM OXALATE
     Indication: Product used for unknown indication
     Route: 048
  24. ESCITALOPRAM [Concomitant]
     Active Substance: ESCITALOPRAM OXALATE
     Indication: Product used for unknown indication
     Route: 048
  25. ESCITALOPRAM [Concomitant]
     Active Substance: ESCITALOPRAM OXALATE
     Indication: Product used for unknown indication
     Route: 048
  26. QUETIAPINE [Suspect]
     Active Substance: QUETIAPINE
     Indication: Product used for unknown indication
     Dosage: 25 MG, QD
     Route: 065
  27. PANTOPRAZOLE [Concomitant]
     Active Substance: PANTOPRAZOLE
     Indication: Product used for unknown indication
     Route: 065

REACTIONS (26)
  - Platelet count decreased [Unknown]
  - Sensitive skin [Unknown]
  - Impaired healing [Recovered/Resolved]
  - Peripheral vein thrombosis [Not Recovered/Not Resolved]
  - Off label use [Unknown]
  - Suture rupture [Recovered/Resolved]
  - Rash erythematous [Unknown]
  - Depression [Not Recovered/Not Resolved]
  - Autoimmune disorder [Unknown]
  - Prostate cancer [Recovered/Resolved]
  - Soft tissue disorder [Recovered/Resolved]
  - Erysipelas [Recovering/Resolving]
  - Leukopenia [Recovered/Resolved]
  - Wound dehiscence [Recovered/Resolved]
  - Acetabulum fracture [Recovering/Resolving]
  - C-reactive protein increased [Recovering/Resolving]
  - Eye inflammation [Recovering/Resolving]
  - Bronchitis [Recovered/Resolved]
  - Angioedema [Recovered/Resolved]
  - Rash erythematous [Unknown]
  - Dysuria [Unknown]
  - Sleep disorder [Unknown]
  - Sepsis [Recovering/Resolving]
  - Fall [Unknown]
  - Lymphoedema [Recovered/Resolved]
  - Lymphocele [Recovered/Resolved]

NARRATIVE: CASE EVENT DATE: 20140701
